FAERS Safety Report 14419363 (Version 1)
Quarter: 2018Q1

REPORT INFORMATION
  Report Type: Spontaneous
  Country: US (occurrence: US)
  Receive Date: 20180120
  Receipt Date: 20180120
  Transmission Date: 20180509
  Serious: No
  Sender: FDA-Public Use
  Company Number: None

PATIENT
  Age: 62 Year
  Sex: Male

DRUGS (2)
  1. CAPECITABINE 500MG WEST-WARD PHARMACEUTICALS [Suspect]
     Active Substance: CAPECITABINE
     Indication: RETROPERITONEAL CANCER
     Route: 048
     Dates: start: 20171030
  2. CAPECITABINE 500MG WEST-WARD PHARMACEUTICALS [Suspect]
     Active Substance: CAPECITABINE
     Indication: NEOPLASM MALIGNANT
     Route: 048
     Dates: start: 20171030

REACTIONS (2)
  - Stomatitis [None]
  - Neuropathy peripheral [None]

NARRATIVE: CASE EVENT DATE: 20171215
